FAERS Safety Report 10138087 (Version 2)
Quarter: 2014Q3

REPORT INFORMATION
  Report Type: Spontaneous
  Country: US (occurrence: US)
  Receive Date: 20140429
  Receipt Date: 20140922
  Transmission Date: 20150326
  Serious: Yes (Hospitalization)
  Sender: FDA-Public Use
  Company Number: US-BAYER-2014-059644

PATIENT
  Age: 37 Year
  Sex: Female
  Weight: 124.72 kg

DRUGS (1)
  1. YAZ [Suspect]
     Active Substance: DROSPIRENONE\ETHINYL ESTRADIOL
     Dosage: UNK
     Dates: start: 2006

REACTIONS (8)
  - Emotional distress [None]
  - Quality of life decreased [None]
  - Pain [Recovered/Resolved]
  - Cerebrovascular accident [Recovered/Resolved]
  - Anxiety [None]
  - Anhedonia [None]
  - Cerebral artery occlusion [Recovered/Resolved]
  - Injury [Recovered/Resolved]

NARRATIVE: CASE EVENT DATE: 200801
